FAERS Safety Report 4845047-6 (Version None)
Quarter: 2005Q4

REPORT INFORMATION
  Report Type: 
  Country: None (occurrence: None)
  Receive Date: 20051202
  Receipt Date: 20051202
  Transmission Date: 20060501
  Serious: Yes (Life-Threatening, Hospitalization, Disabling, Other)
  Sender: FDA-Public Use
  Company Number: None

PATIENT
  Age: 57 Year
  Sex: Female
  Weight: 61.2356 kg

DRUGS (2)
  1. DEPO-MEDROL [Suspect]
     Indication: SCIATICA
     Dosage: 2 DOSES OF 80MG  EPIDURAL
     Route: 008
     Dates: start: 20000126, end: 20000126
  2. DEPO-MEDROL [Suspect]
     Indication: SCIATICA
     Dosage: 2 DOSES OF 80MG  EPIDURAL
     Route: 008
     Dates: start: 20000209, end: 20000209

REACTIONS (9)
  - ABASIA [None]
  - ACTIVITIES OF DAILY LIVING IMPAIRED [None]
  - ARACHNOIDITIS [None]
  - IMPAIRED WORK ABILITY [None]
  - INSOMNIA [None]
  - MEDICATION ERROR [None]
  - MUSCLE SPASMS [None]
  - OFF LABEL USE [None]
  - PAIN [None]
